FAERS Safety Report 22219008 (Version 2)
Quarter: 2023Q2

REPORT INFORMATION
  Report Type: Spontaneous
  Country: CA (occurrence: CA)
  Receive Date: 20230417
  Receipt Date: 20230531
  Transmission Date: 20230721
  Serious: Yes (Other)
  Sender: FDA-Public Use
  Company Number: CA-PFIZER INC-PV202200008460

PATIENT
  Age: 55 Year
  Sex: Female

DRUGS (2)
  1. IBRANCE [Suspect]
     Active Substance: PALBOCICLIB
     Dosage: 125 MG DAILY FOR 21 DAYS OF 28 DAYS CYCLE
     Dates: start: 20210601
  2. FULVESTRANT [Suspect]
     Active Substance: FULVESTRANT
     Dosage: UNK
     Dates: start: 2021

REACTIONS (7)
  - Aortic arteriosclerosis [Unknown]
  - Bone disorder [Unknown]
  - Arthritis [Unknown]
  - Sinus disorder [Unknown]
  - Thyroid calcification [Unknown]
  - Mediastinal fibrosis [Unknown]
  - Insomnia [Unknown]
